FAERS Safety Report 9055397 (Version 1)
Quarter: 2013Q1

REPORT INFORMATION
  Report Type: Other
  Country: IT (occurrence: IT)
  Receive Date: 20130206
  Receipt Date: 20130206
  Transmission Date: 20140127
  Serious: Yes (Hospitalization)
  Sender: FDA-Public Use
  Company Number: IT-WATSON-2013-01730

PATIENT
  Age: 49 None
  Sex: Female

DRUGS (3)
  1. LORAZEPAM [Suspect]
     Indication: PRODUCT USED FOR UNKNOWN INDICATION
     Dosage: 15 MG, SINGLE
     Route: 048
     Dates: start: 20120924, end: 20120924
  2. DICLOFENAC (UNKNOWN) [Suspect]
     Indication: PRODUCT USED FOR UNKNOWN INDICATION
     Dosage: 15 DF, SINGLE
     Route: 048
     Dates: start: 20120924, end: 20120924
  3. OLANZAPINE [Suspect]
     Indication: PRODUCT USED FOR UNKNOWN INDICATION
     Dosage: 10 DF, SINGLE
     Route: 048
     Dates: start: 20120924, end: 20120924

REACTIONS (5)
  - Coma [Unknown]
  - Toxicity to various agents [Unknown]
  - Loss of consciousness [Recovering/Resolving]
  - Drug abuse [Unknown]
  - Overdose [Unknown]
